FAERS Safety Report 9230358 (Version 1)
Quarter: 2013Q2

REPORT INFORMATION
  Report Type: Spontaneous
  Country: US (occurrence: US)
  Receive Date: 20130415
  Receipt Date: 20130415
  Transmission Date: 20140414
  Serious: Yes (Other)
  Sender: FDA-Public Use
  Company Number: US-PFIZER INC-2013117283

PATIENT
  Age: 52 Year
  Sex: Female
  Weight: 92.52 kg

DRUGS (11)
  1. NEURONTIN [Suspect]
     Indication: RESTLESS LEGS SYNDROME
     Dosage: 800 MG, 3X/DAY
  2. POTASSIUM [Concomitant]
     Dosage: 10 MEQ, 2X/DAY
  3. TRAZODONE HYDROCHLORIDE [Concomitant]
     Dosage: 200 MG, 1X/DAY AT BED TIME
  4. SIMVASTATIN [Concomitant]
     Dosage: 10MG DAILY
  5. FLUOXETINE [Concomitant]
     Dosage: 20 MG, UNK
  6. FUROSEMIDE [Concomitant]
     Dosage: 20MG ONE TO TWO TABLETS EVERY DAY
     Route: 048
  7. CYCLOBENZAPRINE HYDROCHLORIDE [Concomitant]
     Dosage: 10 MG, UNK
     Route: 048
  8. LISINOPRIL [Concomitant]
     Dosage: 1MG DAILY
     Route: 048
  9. NEXIUM [Concomitant]
     Dosage: 20MG DAILY
  10. LANTUS [Concomitant]
     Dosage: 60 UNIT DAILY
  11. HUMALOG [Concomitant]
     Dosage: UNK, AS NEEDED

REACTIONS (3)
  - Neoplasm malignant [Unknown]
  - Inguinal mass [Unknown]
  - Diabetic neuropathy [Unknown]
